FAERS Safety Report 21568363 (Version 1)
Quarter: 2022Q4

REPORT INFORMATION
  Report Type: Spontaneous
  Country: US (occurrence: None)
  Receive Date: 20221107
  Receipt Date: 20221107
  Transmission Date: 20230112
  Serious: No
  Sender: FDA-Public Use
  Company Number: None

PATIENT
  Age: 78 Year
  Sex: Male
  Weight: 66.68 kg

DRUGS (2)
  1. FLUDROCORTISONE ACETATE [Suspect]
     Active Substance: FLUDROCORTISONE ACETATE
     Indication: Electrolyte imbalance
     Dosage: FREQUENCY : DAILY;?
     Route: 048
     Dates: start: 20220830, end: 20220916
  2. FLUDROCORTISONE ACETATE [Suspect]
     Active Substance: FLUDROCORTISONE ACETATE
     Indication: Hyperkalaemia

REACTIONS (4)
  - Cardiac failure [None]
  - Hypervolaemia [None]
  - Hypokalaemia [None]
  - Oedema [None]

NARRATIVE: CASE EVENT DATE: 20220913
